FAERS Safety Report 8459742-3 (Version None)
Quarter: 2012Q2

REPORT INFORMATION
  Report Type: 
  Country: None (occurrence: None)
  Receive Date: 20120622
  Receipt Date: 20120620
  Transmission Date: 20120825
  Serious: Yes (Hospitalization)
  Sender: FDA-Public Use
  Company Number: JP-MERCK-1206USA03562

PATIENT

DRUGS (1)
  1. HYZAAR [Suspect]
     Dosage: DAILY DOSE UNKNOWN.
     Route: 048

REACTIONS (1)
  - HEPATITIS FULMINANT [None]
